FAERS Safety Report 4583759-2 (Version None)
Quarter: 2005Q1

REPORT INFORMATION
  Report Type: 
  Country: None (occurrence: None)
  Receive Date: 20050216
  Receipt Date: 20050204
  Transmission Date: 20050727
  Serious: Yes (Hospitalization)
  Sender: FDA-Public Use
  Company Number: FR-BRISTOL-MYERS SQUIBB COMPANY-12855953

PATIENT
  Age: 40 Year
  Sex: Female

DRUGS (3)
  1. ENDOXAN [Suspect]
     Indication: BREAST CANCER FEMALE
     Dates: start: 20040101, end: 20040701
  2. TAMOXIFEN CITRATE [Suspect]
     Indication: BREAST CANCER FEMALE
     Dates: start: 20040501, end: 20040701
  3. FARMORUBICIN [Suspect]
     Indication: BREAST CANCER FEMALE
     Dates: start: 20040101, end: 20040701

REACTIONS (1)
  - DERMATOMYOSITIS [None]
